FAERS Safety Report 4695649-5 (Version None)
Quarter: 2005Q2

REPORT INFORMATION
  Report Type: 
  Country: None (occurrence: None)
  Receive Date: 20050617
  Receipt Date: 20050617
  Transmission Date: 20051028
  Serious: Yes (Life-Threatening, Hospitalization)
  Sender: FDA-Public Use
  Company Number: None

PATIENT
  Age: 53 Year
  Sex: Male
  Weight: 83.9 kg

DRUGS (11)
  1. NABUMETONE [Suspect]
  2. GABAPENTIN [Concomitant]
  3. NAINSULIN , GLARGINE , HUMAN [Concomitant]
  4. LISINOPRIL [Concomitant]
  5. SIMVASTATIN [Concomitant]
  6. HYDROXYZINE PAMOTE [Concomitant]
  7. FLUNISOLINE [Concomitant]
  8. ACETAMINOPHEN [Concomitant]
  9. ACETAMINOPHEN [Concomitant]
  10. FUROSEMIDE [Concomitant]
  11. DIPHENHYDRAMINE HCL [Concomitant]

REACTIONS (1)
  - GASTROINTESTINAL DISORDER [None]
